FAERS Safety Report 13698220 (Version 1)
Quarter: 2017Q2

REPORT INFORMATION
  Report Type: Spontaneous
  Country: US (occurrence: US)
  Receive Date: 20170628
  Receipt Date: 20170628
  Transmission Date: 20170830
  Serious: No
  Sender: FDA-Public Use
  Company Number: US-PFIZER INC-2017273913

PATIENT
  Sex: Female

DRUGS (1)
  1. XELJANZ XR [Suspect]
     Active Substance: TOFACITINIB CITRATE
     Dosage: 11 MG, UNK

REACTIONS (21)
  - Chills [Unknown]
  - Pruritus [Unknown]
  - Chest pain [Unknown]
  - Dry eye [Unknown]
  - Mouth ulceration [Unknown]
  - Synovitis [Recovered/Resolved]
  - Pain [Recovering/Resolving]
  - Musculoskeletal stiffness [Unknown]
  - Micturition urgency [Unknown]
  - Rash [Unknown]
  - Scleral discolouration [Unknown]
  - Lymphadenopathy [Unknown]
  - Peripheral swelling [Unknown]
  - Pain in extremity [Unknown]
  - Contusion [Unknown]
  - Musculoskeletal pain [Unknown]
  - Fatigue [Unknown]
  - Fibromyalgia [Unknown]
  - Dry skin [Unknown]
  - Photosensitivity reaction [Unknown]
  - Nocturia [Unknown]
